FAERS Safety Report 4377982-X (Version None)
Quarter: 2004Q2

REPORT INFORMATION
  Report Type: 
  Country: None (occurrence: None)
  Receive Date: 20040601
  Receipt Date: 20040225
  Transmission Date: 20050107
  Serious: No
  Sender: FDA-Public Use
  Company Number: WAES 0402USA01931

PATIENT
  Age: 69 Year
  Sex: Female

DRUGS (3)
  1. ZETIA [Suspect]
     Indication: HYPERCHOLESTEROLAEMIA
     Dosage: 10MG/DAILY/PO
     Route: 048
     Dates: end: 20040204
  2. THERAPY UNSPECIFIED [Concomitant]
  3. IBUPROFEN [Concomitant]

REACTIONS (6)
  - ANGIONEUROTIC OEDEMA [None]
  - EYE SWELLING [None]
  - LIVER FUNCTION TEST ABNORMAL [None]
  - MYALGIA [None]
  - PALMAR ERYTHEMA [None]
  - PRURITUS [None]
